FAERS Safety Report 23745317 (Version 2)
Quarter: 2024Q2

REPORT INFORMATION
  Report Type: Spontaneous
  Country: CA (occurrence: CA)
  Receive Date: 20240416
  Receipt Date: 20240502
  Transmission Date: 20240715
  Serious: Yes (Hospitalization)
  Sender: FDA-Public Use
  Company Number: CA-BIOCON BIOLOGICS LIMITED-BBL2024001091

PATIENT

DRUGS (6)
  1. OGIVRI [Suspect]
     Active Substance: TRASTUZUMAB-DKST
     Indication: Breast cancer metastatic
     Dosage: UNK
     Route: 042
     Dates: start: 20231124
  2. OGIVRI [Suspect]
     Active Substance: TRASTUZUMAB-DKST
     Dosage: UNK
     Route: 042
     Dates: start: 20231124
  3. OGIVRI [Suspect]
     Active Substance: TRASTUZUMAB-DKST
     Dosage: UNK
     Route: 042
     Dates: start: 20231124
  4. OGIVRI [Suspect]
     Active Substance: TRASTUZUMAB-DKST
     Dosage: UNK
     Route: 042
     Dates: start: 20231124
  5. OGIVRI [Suspect]
     Active Substance: TRASTUZUMAB-DKST
     Dosage: 440 MG
     Route: 042
     Dates: start: 20231124
  6. OGIVRI [Suspect]
     Active Substance: TRASTUZUMAB-DKST
     Dosage: 150 MG
     Route: 042
     Dates: start: 20231124

REACTIONS (4)
  - Hospitalisation [Unknown]
  - Malaise [Unknown]
  - Fatigue [Unknown]
  - Therapy non-responder [Unknown]
